FAERS Safety Report 11116870 (Version 3)
Quarter: 2015Q4

REPORT INFORMATION
  Report Type: Report from Study
  Country: ES (occurrence: ES)
  Receive Date: 20150515
  Receipt Date: 20151008
  Transmission Date: 20160304
  Serious: Yes (Death, Other)
  Sender: FDA-Public Use
  Company Number: ES-ASTRAZENECA-2015SE41250

PATIENT
  Age: 55 Year
  Sex: Female

DRUGS (1)
  1. OLAPARIB [Suspect]
     Active Substance: OLAPARIB
     Route: 048
     Dates: end: 20150417

REACTIONS (2)
  - Anaemia [Unknown]
  - Disease progression [Fatal]

NARRATIVE: CASE EVENT DATE: 201504
